FAERS Safety Report 4386355-5 (Version None)
Quarter: 2004Q2

REPORT INFORMATION
  Report Type: 
  Country: None (occurrence: None)
  Receive Date: 20040623
  Receipt Date: 20040608
  Transmission Date: 20050107
  Serious: Yes (Life-Threatening, Hospitalization)
  Sender: FDA-Public Use
  Company Number: EWC040639481

PATIENT
  Age: 55 Year
  Sex: Female

DRUGS (8)
  1. PERMAX [Suspect]
     Indication: PARKINSON'S DISEASE
     Dosage: 1 MG/3 DAY
     Dates: start: 20020430, end: 20040511
  2. JUMEX (SELEGILINE) [Concomitant]
  3. TRIMPERANOL(METIPRANOLOL) [Concomitant]
  4. RHEFLUIN [Concomitant]
  5. KAINORMIN (POTASSIUM CHLORIDE) [Concomitant]
  6. ANOPYRIN (ACETYLSALICYLIC ACID) [Concomitant]
  7. CARDILAN [Concomitant]
  8. PREMELLA [Concomitant]

REACTIONS (4)
  - CARDIAC VALVE DISEASE [None]
  - FIBROSIS [None]
  - LEFT VENTRICULAR FAILURE [None]
  - MITRAL VALVE INCOMPETENCE [None]
